FAERS Safety Report 7920252-0 (Version None)
Quarter: 2011Q4

REPORT INFORMATION
  Report Type: 
  Country: None (occurrence: None)
  Receive Date: 20111117
  Receipt Date: 20111107
  Transmission Date: 20120403
  Serious: Yes (Hospitalization)
  Sender: FDA-Public Use
  Company Number: US-BAYER-2011-055255

PATIENT
  Age: 33 Year
  Sex: Female
  Weight: 86.168 kg

DRUGS (3)
  1. YASMIN [Suspect]
     Dosage: UNK
     Dates: start: 20040101, end: 20090101
  2. YAZ [Suspect]
     Dosage: UNK
     Dates: start: 20040101, end: 20090101
  3. IMODIUM A-D [Concomitant]
     Indication: DIARRHOEA
     Dosage: UNK UNK, QD
     Dates: start: 20090101, end: 20110101

REACTIONS (5)
  - PAIN [None]
  - CHOLECYSTITIS CHRONIC [None]
  - BILE DUCT STONE [None]
  - CHOLELITHIASIS [None]
  - FEAR [None]
